FAERS Safety Report 10526956 (Version 2)
Quarter: 2014Q4

REPORT INFORMATION
  Report Type: Spontaneous
  Country: BR (occurrence: BR)
  Receive Date: 20141020
  Receipt Date: 20141122
  Transmission Date: 20150528
  Serious: No
  Sender: FDA-Public Use
  Company Number: BR-ASTRAZENECA-2014SE78524

PATIENT
  Age: 866 Month
  Sex: Male
  Weight: 95 kg

DRUGS (8)
  1. PLAVIX [Concomitant]
     Active Substance: CLOPIDOGREL BISULFATE
     Indication: ANTIPLATELET THERAPY
  2. HYDREA [Concomitant]
     Active Substance: HYDROXYUREA
     Indication: GENE MUTATION
     Route: 048
  3. BRILINTA [Suspect]
     Active Substance: TICAGRELOR
     Indication: THROMBOSIS PROPHYLAXIS
     Dosage: EVERY DAY
     Route: 048
     Dates: start: 201407
  4. APROVEL [Concomitant]
     Active Substance: IRBESARTAN
     Indication: HYPERTENSION
     Route: 048
  5. CRESTOR [Suspect]
     Active Substance: ROSUVASTATIN CALCIUM
     Indication: BLOOD CHOLESTEROL INCREASED
     Dosage: EVERY DAY
     Route: 048
  6. ANCORON [Concomitant]
     Active Substance: AMIODARONE HYDROCHLORIDE
     Indication: ARRHYTHMIA
     Route: 048
  7. HYDREA [Concomitant]
     Active Substance: HYDROXYUREA
     Indication: THROMBOSIS PROPHYLAXIS
     Route: 048
  8. BRILINTA [Suspect]
     Active Substance: TICAGRELOR
     Indication: GENE MUTATION
     Dosage: EVERY DAY
     Route: 048
     Dates: start: 201407

REACTIONS (1)
  - Off label use [Not Recovered/Not Resolved]

NARRATIVE: CASE EVENT DATE: 201407
